FAERS Safety Report 7650931-4 (Version None)
Quarter: 2011Q3

REPORT INFORMATION
  Report Type: 
  Country: None (occurrence: None)
  Receive Date: 20110802
  Receipt Date: 20110726
  Transmission Date: 20111222
  Serious: Yes (Other)
  Sender: FDA-Public Use
  Company Number: US-BAYER-2011-019323

PATIENT
  Age: 55 Year
  Sex: Female
  Weight: 119 kg

DRUGS (5)
  1. BETASERON [Suspect]
     Dosage: 8 MIU, QOD
     Route: 058
     Dates: start: 20100925, end: 20110505
  2. LORTAB [Concomitant]
     Indication: NEUROPATHY PERIPHERAL
     Dosage: CAN TAKE UP TO 6X A DAY BUT USUALLY ONLY TAKES 1 AND CUTS IT INTO HALF OR QUARTERS
  3. BETASERON [Suspect]
     Dosage: UNK
     Route: 058
     Dates: start: 20100420, end: 20100813
  4. BETASERON [Suspect]
     Dosage: 6 MIU, QOD
     Route: 058
     Dates: start: 20110625
  5. BETASERON [Suspect]
     Indication: RELAPSING-REMITTING MULTIPLE SCLEROSIS
     Dosage: UNK
     Route: 058
     Dates: start: 20000217, end: 20040217

REACTIONS (5)
  - PERIARTHRITIS [None]
  - FATIGUE [None]
  - SYNOVIAL SARCOMA [None]
  - DEVICE DISLOCATION [None]
  - DIARRHOEA [None]
